FAERS Safety Report 5785784-2 (Version None)
Quarter: 2008Q2

REPORT INFORMATION
  Report Type: 
  Country: None (occurrence: None)
  Receive Date: 20080605
  Receipt Date: 20080225
  Transmission Date: 20081010
  Serious: No
  Sender: FDA-Public Use
  Company Number: A0711500A

PATIENT

DRUGS (2)
  1. ALLI [Suspect]
  2. IBUROFEN [Concomitant]

REACTIONS (3)
  - INFECTIOUS MONONUCLEOSIS [None]
  - NAUSEA [None]
  - VOMITING [None]
